FAERS Safety Report 9260027 (Version 2)
Quarter: 2013Q2

REPORT INFORMATION
  Report Type: Spontaneous
  Country: US (occurrence: US)
  Receive Date: 20130429
  Receipt Date: 20130620
  Transmission Date: 20140414
  Serious: No
  Sender: FDA-Public Use
  Company Number: US-ASTRAZENECA-2013SE27674

PATIENT
  Age: 48 Year
  Sex: Female

DRUGS (4)
  1. NEXIUM [Suspect]
     Indication: GASTROOESOPHAGEAL REFLUX DISEASE
     Dosage: ONCE
     Route: 048
  2. ZANTAC [Concomitant]
  3. CALCIUM [Concomitant]
  4. HYDROCODONE [Concomitant]
     Dosage: 7.5 TO 100 MG
     Dates: start: 20101020

REACTIONS (6)
  - Osteoporosis [Unknown]
  - Bone density decreased [Unknown]
  - Multiple fractures [Unknown]
  - Lower limb fracture [Unknown]
  - Fibula fracture [Unknown]
  - Osteogenesis imperfecta [Unknown]
